FAERS Safety Report 18261603 (Version 1)
Quarter: 2020Q3

REPORT INFORMATION
  Report Type: Spontaneous
  Country: US (occurrence: US)
  Receive Date: 20200911
  Receipt Date: 20200911
  Transmission Date: 20201103
  Serious: Yes (Hospitalization)
  Sender: FDA-Public Use
  Company Number: None

PATIENT
  Sex: Female

DRUGS (20)
  1. FORTEO [Suspect]
     Active Substance: TERIPARATIDE
     Indication: SENILE OSTEOPOROSIS
     Dates: start: 20200103
  2. DULOXETINE. [Concomitant]
     Active Substance: DULOXETINE
  3. MUCINEX [Concomitant]
     Active Substance: GUAIFENESIN
  4. LIVALO [Concomitant]
     Active Substance: PITAVASTATIN CALCIUM
  5. METOPROLOL TARTRATE. [Concomitant]
     Active Substance: METOPROLOL TARTRATE
  6. MONTELUKAST [Concomitant]
     Active Substance: MONTELUKAST SODIUM
  7. TORSEMIDE. [Concomitant]
     Active Substance: TORSEMIDE
  8. TOUJEO [Concomitant]
     Active Substance: INSULIN GLARGINE
  9. ELIQUIS [Concomitant]
     Active Substance: APIXABAN
  10. PRAMIPEXOLE. [Concomitant]
     Active Substance: PRAMIPEXOLE
  11. QUETIAPINE. [Concomitant]
     Active Substance: QUETIAPINE
  12. DONEPEZIL. [Concomitant]
     Active Substance: DONEPEZIL
  13. METFORMIN [Concomitant]
     Active Substance: METFORMIN HYDROCHLORIDE
  14. MYRETRIQ [Concomitant]
  15. DIGOXIN. [Concomitant]
     Active Substance: DIGOXIN
  16. MEMANTINE. [Concomitant]
     Active Substance: MEMANTINE
  17. HYDROXYCHLOR [Concomitant]
     Active Substance: HYDROXYCHLOROQUINE
  18. ISOSORB [Concomitant]
  19. PANTOPRAZOLE [Concomitant]
     Active Substance: PANTOPRAZOLE
  20. TRULICITY [Concomitant]
     Active Substance: DULAGLUTIDE

REACTIONS (4)
  - Therapy interrupted [None]
  - Blood glucose abnormal [None]
  - Cardiac disorder [None]
  - Urinary tract infection [None]
